FAERS Safety Report 11584538 (Version 1)
Quarter: 2015Q4

REPORT INFORMATION
  Report Type: Spontaneous
  Country: ES (occurrence: ES)
  Receive Date: 20151001
  Receipt Date: 20151001
  Transmission Date: 20160304
  Serious: Yes (Other)
  Sender: FDA-Public Use
  Company Number: PHHY2015ES116715

PATIENT
  Age: 56 Year
  Sex: Female

DRUGS (1)
  1. TRAMADOL. [Suspect]
     Active Substance: TRAMADOL
     Indication: NERVOUS SYSTEM DISORDER
     Route: 065

REACTIONS (1)
  - Psychotic disorder due to a general medical condition [Unknown]
